FAERS Safety Report 4599758-0 (Version None)
Quarter: 2005Q1

REPORT INFORMATION
  Report Type: 
  Country: None (occurrence: None)
  Receive Date: 20050303
  Receipt Date: 20050219
  Transmission Date: 20050727
  Serious: Yes (Hospitalization, Other)
  Sender: FDA-Public Use
  Company Number: 8009080

PATIENT
  Sex: Female

DRUGS (3)
  1. KEPPRA [Suspect]
     Indication: CONVULSION PROPHYLAXIS
     Dosage: 2000 MG/D PO
     Route: 048
     Dates: start: 20040801
  2. TEMOZOLOMIDE [Suspect]
     Indication: GLIOBLASTOMA
     Dosage: NI/D PO
     Route: 048
     Dates: start: 20041101
  3. . [Concomitant]
     Route: 048

REACTIONS (4)
  - APLASTIC ANAEMIA [None]
  - DIZZINESS [None]
  - HEPATIC ENZYME INCREASED [None]
  - SYNCOPE [None]
